FAERS Safety Report 21610749 (Version 2)
Quarter: 2022Q4

REPORT INFORMATION
  Report Type: Spontaneous
  Country: CN (occurrence: None)
  Receive Date: 20221117
  Receipt Date: 20221122
  Transmission Date: 20230113
  Serious: No
  Sender: FDA-Public Use
  Company Number: CN-ROCHE-3218069

PATIENT
  Age: 51 Year
  Sex: Male

DRUGS (9)
  1. MABTHERA [Suspect]
     Active Substance: RITUXIMAB
     Indication: Mantle cell lymphoma stage II
     Dosage: 4 CYCLES?13-DEC-2018,13-JAN-2019,14-FEB-2019,10-MAR-2019,16-APR-2019, 20-MAY-2019
     Route: 065
     Dates: start: 201509, end: 201512
  2. GAZYVA [Suspect]
     Active Substance: OBINUTUZUMAB
     Indication: Mantle cell lymphoma stage II
     Dosage: 1000MG D1,D8,D15 FOR FIRST CYCLE AND 1000MG D1 FOR 2TH TO 5TH CYCLES FROM 20/JUN/2022 TO 27/OCT/2022
     Route: 042
  3. CYCLOPHOSPHAMIDE [Concomitant]
     Active Substance: CYCLOPHOSPHAMIDE
     Indication: Mantle cell lymphoma stage II
     Dosage: 4 CYCLES
     Dates: start: 201509, end: 201512
  4. DOXORUBICIN [Concomitant]
     Active Substance: DOXORUBICIN
     Indication: Mantle cell lymphoma stage II
     Dosage: 4 CYCLES
     Dates: start: 201509, end: 201512
  5. VINCRISTINE [Concomitant]
     Active Substance: VINCRISTINE
     Indication: Mantle cell lymphoma stage II
     Dosage: 4 CYCLES
     Dates: start: 201509, end: 201512
  6. PREDNISONE [Concomitant]
     Active Substance: PREDNISONE
     Indication: Mantle cell lymphoma stage II
     Dosage: 4 CYCLES
     Dates: start: 201509, end: 201512
  7. IBRUTINIB [Concomitant]
     Active Substance: IBRUTINIB
     Indication: Mantle cell lymphoma stage II
     Dosage: 13-DEC-2018,13-JAN-2019,14-FEB-2019,10-MAR-2019,16-APR-2019, 20-MAY-2019
     Route: 065
  8. IBRUTINIB [Concomitant]
     Active Substance: IBRUTINIB
     Route: 065
     Dates: start: 20220620, end: 20221027
  9. BENDAMUSTINE [Concomitant]
     Active Substance: BENDAMUSTINE
     Indication: Mantle cell lymphoma stage II
     Dosage: 175MG D1-D2
     Dates: start: 20220620, end: 20221027

REACTIONS (2)
  - Off label use [Unknown]
  - No adverse event [Unknown]
